FAERS Safety Report 4439086-7 (Version None)
Quarter: 2004Q3

REPORT INFORMATION
  Report Type: 
  Country: None (occurrence: None)
  Receive Date: 20040830
  Receipt Date: 20040820
  Transmission Date: 20050211
  Serious: Yes (Death, Hospitalization)
  Sender: FDA-Public Use
  Company Number: 2004229592IT

PATIENT
  Age: 65 Year
  Sex: Male

DRUGS (4)
  1. CAMPTOSAR [Suspect]
     Indication: COLORECTAL CANCER
     Dosage: 600, IV
     Route: 042
     Dates: start: 20040730, end: 20040730
  2. CETUXIMAB () [Suspect]
     Indication: COLORECTAL CANCER
     Dosage: 690, IV
     Route: 042
     Dates: start: 20040730, end: 20040730
  3. ONDANSETRON HCL [Concomitant]
  4. DEXAMETHASONE [Concomitant]

REACTIONS (9)
  - ASCITES [None]
  - DEHYDRATION [None]
  - HEPATIC FAILURE [None]
  - HEPATIC NEOPLASM [None]
  - NEUTROPENIA [None]
  - PORTAL HYPERTENSION [None]
  - PORTAL VEIN THROMBOSIS [None]
  - SEPSIS [None]
  - WHITE BLOOD CELL COUNT DECREASED [None]
